FAERS Safety Report 9131560 (Version 3)
Quarter: 2013Q3

REPORT INFORMATION
  Report Type: Spontaneous
  Country: DK (occurrence: DK)
  Receive Date: 20130301
  Receipt Date: 20130920
  Transmission Date: 20140515
  Serious: Yes (Disabling, Other)
  Sender: FDA-Public Use
  Company Number: DK-JNJFOC-20130300116

PATIENT
  Age: 40 Year
  Sex: Male
  Weight: 80 kg

DRUGS (3)
  1. REMICADE [Suspect]
     Indication: COLITIS ULCERATIVE
     Route: 042
     Dates: start: 201006
  2. SERTRALINE [Concomitant]
     Route: 065
     Dates: start: 201205, end: 201208
  3. DIPENTUM [Concomitant]
     Dosage: 2000
     Route: 065

REACTIONS (5)
  - Blood creatine phosphokinase increased [Unknown]
  - Muscular weakness [Not Recovered/Not Resolved]
  - Myalgia [Unknown]
  - Muscle fatigue [Unknown]
  - Exercise tolerance decreased [Not Recovered/Not Resolved]
